FAERS Safety Report 8974999 (Version 1)
Quarter: 2012Q4

REPORT INFORMATION
  Report Type: 
  Country: US (occurrence: US)
  Receive Date: 20121220
  Receipt Date: 20121220
  Transmission Date: 20130627
  Serious: Yes (Hospitalization, Disabling)
  Sender: FDA-Public Use
  Company Number: US-BAYER-2012-131622

PATIENT
  Age: 47 Year
  Sex: Female

DRUGS (4)
  1. YAZ [Suspect]
  2. YASMIN [Suspect]
  3. LEVOXYL [Concomitant]
  4. ATENOLOL [Concomitant]

REACTIONS (3)
  - Pulmonary embolism [Recovering/Resolving]
  - Deep vein thrombosis [None]
  - Cerebrovascular accident [Recovering/Resolving]
